FAERS Safety Report 9536679 (Version 1)
Quarter: 2013Q3

REPORT INFORMATION
  Report Type: Spontaneous
  Country: DK (occurrence: DK)
  Receive Date: 20130919
  Receipt Date: 20130919
  Transmission Date: 20140515
  Serious: Yes (Other)
  Sender: FDA-Public Use
  Company Number: DK-JNJFOC-20130906067

PATIENT
  Sex: Female

DRUGS (2)
  1. TOPIRAMATE [Suspect]
     Indication: EPILEPSY
     Route: 048
  2. OXCARBAZEPINE [Interacting]
     Indication: EPILEPSY
     Route: 065

REACTIONS (3)
  - Complex partial seizures [Unknown]
  - Drug interaction [Unknown]
  - Exposure during pregnancy [Recovered/Resolved]
